FAERS Safety Report 7769018-5 (Version None)
Quarter: 2011Q3

REPORT INFORMATION
  Report Type: 
  Country: None (occurrence: None)
  Receive Date: 20110922
  Receipt Date: 20101130
  Transmission Date: 20111222
  Serious: No
  Sender: FDA-Public Use
  Company Number: US-ASTRAZENECA-2010SE56933

PATIENT
  Age: 54 Year
  Sex: Female
  Weight: 129.3 kg

DRUGS (19)
  1. SEROQUEL [Suspect]
     Dosage: 200-300 MG IN THE MORNING, 400-600 MG AT HS
     Route: 048
  2. SIMVASTATIN [Concomitant]
  3. CLONAZEPAM [Concomitant]
  4. SEROQUEL [Suspect]
     Indication: PANIC DISORDER
     Route: 048
     Dates: start: 20080101
  5. GLIMEPIRIDE [Concomitant]
     Indication: DIABETES MELLITUS
     Route: 048
  6. TOVIAZ [Concomitant]
     Route: 048
  7. JANUVIA [Concomitant]
     Route: 048
  8. FISH OIL [Concomitant]
     Route: 048
  9. VISTARIL [Concomitant]
     Route: 048
  10. SEROQUEL [Suspect]
     Dosage: 200-300 MG IN THE MORNING, 400-600 MG AT HS
     Route: 048
  11. PAXIL CR [Concomitant]
     Indication: DEPRESSION
     Route: 048
  12. FLUTICASONET [Concomitant]
  13. OXYCONTIN [Concomitant]
     Indication: PAIN
     Route: 048
  14. CLINDAMYCIN PHOSPHATE [Concomitant]
     Route: 048
  15. ROPINIROLE HYDROCHLORIDE [Concomitant]
     Indication: PRODUCT USED FOR UNKNOWN INDICATION
     Route: 048
  16. SEROQUEL [Suspect]
     Indication: POST-TRAUMATIC STRESS DISORDER
     Route: 048
     Dates: start: 20080101
  17. SEROQUEL [Suspect]
     Indication: MAJOR DEPRESSION
     Route: 048
     Dates: start: 20080101
  18. SEROQUEL [Suspect]
     Dosage: 200-300 MG IN THE MORNING, 400-600 MG AT HS
     Route: 048
  19. METFORMIN [Concomitant]
     Indication: DIABETES MELLITUS
     Route: 048

REACTIONS (4)
  - ANGER [None]
  - DRUG DOSE OMISSION [None]
  - DEPRESSED MOOD [None]
  - AGGRESSION [None]
